FAERS Safety Report 6782521-X (Version None)
Quarter: 2010Q2

REPORT INFORMATION
  Report Type: 
  Country: None (occurrence: None)
  Receive Date: 20100616
  Receipt Date: 20100602
  Transmission Date: 20101027
  Serious: Yes (Hospitalization)
  Sender: FDA-Public Use
  Company Number: A-US2010-37147

PATIENT
  Age: 57 Year
  Sex: Female

DRUGS (1)
  1. VENTAVIS [Suspect]
     Indication: PULMONARY ARTERIAL HYPERTENSION
     Dosage: 2.5 UG, 6X DAY, RESPIRATORY
     Route: 055
     Dates: start: 20100407, end: 20100416

REACTIONS (4)
  - BLOOD POTASSIUM DECREASED [None]
  - FLUID RETENTION [None]
  - RENAL DISORDER [None]
  - WEIGHT INCREASED [None]
